FAERS Safety Report 4558510-2 (Version None)
Quarter: 2005Q1

REPORT INFORMATION
  Report Type: 
  Country: None (occurrence: None)
  Receive Date: 20050121
  Receipt Date: 20050110
  Transmission Date: 20050727
  Serious: Yes (Hospitalization, Other)
  Sender: FDA-Public Use
  Company Number: US-MERCK-0501USA00958

PATIENT
  Sex: Female

DRUGS (1)
  1. VIOXX [Suspect]
     Indication: ARTHRALGIA
     Route: 048
     Dates: start: 20020501, end: 20021201

REACTIONS (6)
  - ANAEMIA [None]
  - BLINDNESS UNILATERAL [None]
  - EYE DISORDER [None]
  - HAEMORRHAGE [None]
  - OCULAR VASCULAR DISORDER [None]
  - RETINAL ARTERY OCCLUSION [None]
